FAERS Safety Report 10240265 (Version 1)
Quarter: 2014Q2

REPORT INFORMATION
  Report Type: Spontaneous
  Country: JP (occurrence: JP)
  Receive Date: 20140617
  Receipt Date: 20140617
  Transmission Date: 20141212
  Serious: Yes (Hospitalization, Other)
  Sender: FDA-Public Use
  Company Number: PHHY2014JP070853

PATIENT
  Age: 69 Year
  Sex: Male

DRUGS (8)
  1. 5-FLUOROURACIL [Suspect]
     Indication: COLON CANCER
     Route: 041
  2. 5-FLUOROURACIL [Suspect]
     Indication: METASTASES TO LIVER
  3. CALCIUM LEVOFOLINATE [Suspect]
     Indication: COLON CANCER
     Route: 041
  4. CALCIUM LEVOFOLINATE [Suspect]
     Indication: METASTASES TO LIVER
  5. AVASTIN [Suspect]
     Indication: COLON CANCER
     Route: 041
  6. AVASTIN [Suspect]
     Indication: METASTASES TO LIVER
  7. ELPLAT [Suspect]
     Indication: COLON CANCER
     Route: 041
  8. ELPLAT [Suspect]
     Indication: METASTASES TO LIVER

REACTIONS (4)
  - Decreased appetite [Unknown]
  - White blood cell count decreased [Unknown]
  - Liver disorder [Unknown]
  - Neuropathy peripheral [Unknown]
